FAERS Safety Report 9038700 (Version 1)
Quarter: 2013Q1

REPORT INFORMATION
  Report Type: Spontaneous
  Country: US (occurrence: None)
  Receive Date: 20130123
  Receipt Date: 20130123
  Transmission Date: 20140127
  Serious: Yes (Other)
  Sender: FDA-Public Use
  Company Number: None

PATIENT
  Age: 68 Year
  Sex: Female
  Weight: 79.38 kg

DRUGS (1)
  1. ADVAIR DISKUS [Suspect]
     Indication: BRONCHITIS
     Dates: start: 20130106, end: 20130111

REACTIONS (3)
  - Aphonia [None]
  - Oropharyngeal pain [None]
  - Diarrhoea [None]
